FAERS Safety Report 23262389 (Version 1)
Quarter: 2023Q4

REPORT INFORMATION
  Report Type: Spontaneous
  Country: FI (occurrence: FI)
  Receive Date: 20231205
  Receipt Date: 20231205
  Transmission Date: 20240110
  Serious: Yes (Other)
  Sender: FDA-Public Use
  Company Number: None

PATIENT
  Age: 32 Year
  Sex: Female

DRUGS (1)
  1. SERTRALINE [Suspect]
     Active Substance: SERTRALINE HYDROCHLORIDE
     Indication: Depression
     Dosage: 50 MILLIGRAM, QD
     Route: 065
     Dates: start: 20230421, end: 20231025

REACTIONS (4)
  - Colitis [Recovering/Resolving]
  - Colitis microscopic [Recovering/Resolving]
  - Abdominal pain [Recovering/Resolving]
  - Diarrhoea [Recovering/Resolving]
